FAERS Safety Report 7849934-6 (Version None)
Quarter: 2011Q4

REPORT INFORMATION
  Report Type: 
  Country: None (occurrence: None)
  Receive Date: 20111025
  Receipt Date: 20111025
  Transmission Date: 20120403
  Serious: Yes (Hospitalization)
  Sender: FDA-Public Use
  Company Number: None

PATIENT
  Age: 63 Year
  Sex: Male
  Weight: 85.2 kg

DRUGS (2)
  1. RITUXIMAB [Suspect]
     Indication: CHEMOTHERAPY
     Dates: start: 20110513, end: 20110513
  2. RITUXIMAB [Suspect]
     Indication: B-CELL LYMPHOMA
     Dates: start: 20110513, end: 20110513

REACTIONS (5)
  - HYPERTENSION [None]
  - CHILLS [None]
  - BRONCHOSPASM [None]
  - ANGINA PECTORIS [None]
  - RASH [None]
